FAERS Safety Report 6495811-5 (Version None)
Quarter: 2009Q4

REPORT INFORMATION
  Report Type: 
  Country: None (occurrence: None)
  Receive Date: 20091214
  Receipt Date: 20090825
  Transmission Date: 20100525
  Serious: No
  Sender: FDA-Public Use
  Company Number: US-BRISTOL-MYERS SQUIBB COMPANY-14741888

PATIENT
  Age: 36 Year
  Sex: Male

DRUGS (1)
  1. ABILIFY [Suspect]
     Indication: BIPOLAR DISORDER
     Dosage: INITIALLY STARTED WITH 10 MG  15MG FROM 30MAR09-3AUG09 REDUCED TO 10MG
     Route: 048
     Dates: start: 20090106

REACTIONS (2)
  - FLAT AFFECT [None]
  - SEDATION [None]
